FAERS Safety Report 6404100-6 (Version None)
Quarter: 2009Q4

REPORT INFORMATION
  Report Type: 
  Country: None (occurrence: None)
  Receive Date: 20091016
  Receipt Date: 20090909
  Transmission Date: 20100525
  Serious: No
  Sender: FDA-Public Use
  Company Number: US-ALEXION-A200900737

PATIENT
  Sex: Male

DRUGS (17)
  1. SOLIRIS [Suspect]
     Indication: PAROXYSMAL NOCTURNAL HAEMOGLOBINURIA
     Dosage: QW
     Route: 042
     Dates: start: 20071201
  2. SOLIRIS [Suspect]
     Dosage: 900 MG, Q2W
     Route: 042
  3. PROCRIT                            /00909301/ [Concomitant]
     Dosage: Q2W
  4. FLOMAX [Concomitant]
     Dosage: 0.4 MG, QD
  5. FINASTERIDE [Concomitant]
     Dosage: 5 MG, QD
  6. POTASSIUM CHLORIDE [Concomitant]
     Dosage: 10 MG, BID
  7. ATENOLOL [Concomitant]
     Dosage: 50 MG, QD
  8. FUROSEMIDE [Concomitant]
     Dosage: 80 MG, BID
  9. LEVOTHYROXINE SODIUM [Concomitant]
     Dosage: 75 UG, QD
  10. VERAPAMIL [Concomitant]
     Dosage: 180 MG, QD
  11. CHLORDIAZEPOXIDE [Concomitant]
     Dosage: 10 MG, QD
  12. HUMULIN                            /00646001/ [Concomitant]
     Dosage: SLIDING SCALE
  13. PREDNISONE [Concomitant]
     Dosage: 10 MG, QD
  14. HYDROCODONE [Concomitant]
     Dosage: 5/500, Q4H, PRN
  15. ASPIRIN [Concomitant]
     Dosage: 81 MG, QD
  16. FOLATE [Concomitant]
     Dosage: 1 MG, QD
  17. VITAMIN B12                        /00056201/ [Concomitant]
     Dosage: 1 MG, QMONTH

REACTIONS (1)
  - DIZZINESS [None]
